FAERS Safety Report 9886654 (Version 3)
Quarter: 2014Q2

REPORT INFORMATION
  Report Type: Spontaneous
  Country: GB (occurrence: GB)
  Receive Date: 20140210
  Receipt Date: 20140421
  Transmission Date: 20141212
  Serious: Yes (Hospitalization, Disabling)
  Sender: FDA-Public Use
  Company Number: GB-ACTAVIS-2014-02013

PATIENT
  Age: 60 Year
  Sex: Female
  Weight: 78 kg

DRUGS (7)
  1. CYCLOPHOSPHAMIDE (UNKNOWN) [Suspect]
     Indication: BREAST CANCER FEMALE
     Dosage: UNK
     Route: 051
     Dates: start: 200006, end: 200010
  2. EPIRUBICIN (UNKNOWN) [Suspect]
     Indication: BREAST CANCER FEMALE
     Dosage: UNK
     Route: 051
     Dates: start: 200006, end: 200010
  3. FLUOROURACIL [Suspect]
     Indication: BREAST CANCER FEMALE
     Dosage: UNK
     Route: 051
     Dates: start: 200006, end: 200010
  4. OXYCONTIN [Concomitant]
     Indication: PRODUCT USED FOR UNKNOWN INDICATION
     Dosage: 1600 MG, DAILY;REDUCED TO 40MGS
     Route: 065
  5. ADCAL                              /00751519/ [Concomitant]
     Indication: BONE DISORDER
     Dosage: DAILY
     Route: 065
  6. FORSTEO [Concomitant]
     Indication: BONE DISORDER
     Dosage: UNK
     Route: 065
  7. KETAMINE [Concomitant]
     Indication: PRODUCT USED FOR UNKNOWN INDICATION
     Dosage: UNK
     Route: 065

REACTIONS (3)
  - Osteopenia [Unknown]
  - Spinal fracture [Not Recovered/Not Resolved]
  - Pain [Unknown]
